FAERS Safety Report 6379457-5 (Version None)
Quarter: 2009Q3

REPORT INFORMATION
  Report Type: 
  Country: None (occurrence: None)
  Receive Date: 20090928
  Receipt Date: 20090918
  Transmission Date: 20100115
  Serious: Yes (Other)
  Sender: FDA-Public Use
  Company Number: B0590295A

PATIENT
  Age: 32 Year
  Sex: Female
  Weight: 68 kg

DRUGS (4)
  1. COMBIVIR [Suspect]
     Indication: HIV INFECTION
     Route: 048
     Dates: start: 20030529
  2. ACYCLOVIR [Suspect]
     Indication: ANTIVIRAL PROPHYLAXIS
     Dosage: 800MG PER DAY
     Route: 048
     Dates: start: 20030429
  3. EFAVIRENZ [Suspect]
     Indication: HIV INFECTION
     Dosage: 600MG PER DAY
     Route: 048
     Dates: start: 20030529
  4. SEPTRIN [Suspect]
     Dosage: 480MG PER DAY
     Route: 048
     Dates: start: 20030429, end: 20090804

REACTIONS (2)
  - ABORTION MISSED [None]
  - PREGNANCY [None]
